FAERS Safety Report 7233012-3 (Version None)
Quarter: 2011Q1

REPORT INFORMATION
  Report Type: 
  Country: None (occurrence: None)
  Receive Date: 20110119
  Receipt Date: 20110114
  Transmission Date: 20110831
  Serious: Yes (Other)
  Sender: FDA-Public Use
  Company Number: US-PFIZER INC-2011010279

PATIENT

DRUGS (3)
  1. CYMBALTA [Concomitant]
     Indication: DEPRESSION
     Dosage: UNK
     Route: 048
  2. DEPO-MEDROL [Suspect]
     Indication: RASH
     Dosage: 40 MG/ML, UNK
     Route: 030
     Dates: start: 20100901, end: 20100901
  3. DEPO-MEDROL [Suspect]
     Indication: HYPERSENSITIVITY

REACTIONS (1)
  - LIPOATROPHY [None]
